FAERS Safety Report 5975694-X (Version None)
Quarter: 2008Q4

REPORT INFORMATION
  Report Type: 
  Country: None (occurrence: None)
  Receive Date: 20081202
  Receipt Date: 20081128
  Transmission Date: 20090506
  Serious: Yes (Death)
  Sender: FDA-Public Use
  Company Number: PHHY2008NO30056

PATIENT
  Sex: Female

DRUGS (7)
  1. VOLTAREN [Suspect]
     Indication: CANCER PAIN
     Dosage: 50 MG, BID
     Route: 048
  2. MEDROL [Suspect]
     Indication: BREAST CANCER METASTATIC
     Dosage: 4 MG, BID
     Route: 048
  3. ACETAMINOPHEN [Concomitant]
     Dosage: 1 G, QID
     Route: 048
  4. AFIPRAN [Concomitant]
     Dosage: 10 MG, TID
     Route: 048
  5. DURAGESIC-100 [Concomitant]
     Dosage: 87 MICROGRAM (75 + 12MCG)
     Route: 062
  6. DOLCONTIN [Concomitant]
     Dosage: 100 + 90 MG DAILY
     Route: 048
  7. CALCIUM-SANDOZ [Concomitant]
     Dosage: 500 MG, BID
     Route: 048

REACTIONS (2)
  - DRUG INTERACTION [None]
  - GASTRIC ULCER PERFORATION [None]
